FAERS Safety Report 6247366-8 (Version None)
Quarter: 2009Q2

REPORT INFORMATION
  Report Type: 
  Country: None (occurrence: None)
  Receive Date: 20090624
  Receipt Date: 20090624
  Transmission Date: 20091009
  Serious: Yes (Hospitalization)
  Sender: FDA-Public Use
  Company Number: None

PATIENT
  Age: 76 Year
  Sex: Female
  Weight: 64 kg

DRUGS (6)
  1. QUININE [Suspect]
     Indication: RESTLESS LEGS SYNDROME
     Dosage: 324MG PO QD
     Route: 048
  2. CLOPIDOGREL [Concomitant]
  3. METHYLPREDNISOLONE [Concomitant]
  4. ASPIRIN [Concomitant]
  5. VALSARTAN [Concomitant]
  6. METOPROLOL SUCCINATE [Concomitant]

REACTIONS (5)
  - CHOLECYSTITIS [None]
  - HAEMOGLOBIN DECREASED [None]
  - HAEMOLYSIS [None]
  - MASS [None]
  - PANCREATITIS [None]
